FAERS Safety Report 18430828 (Version 2)
Quarter: 2020Q4

REPORT INFORMATION
  Report Type: Report from Study
  Country: US (occurrence: US)
  Receive Date: 20201027
  Receipt Date: 20201211
  Transmission Date: 20210114
  Serious: Yes (Other)
  Sender: FDA-Public Use
  Company Number: US-ROCHE-2555564

PATIENT
  Age: 63 Year
  Sex: Male
  Weight: 63.9 kg

DRUGS (4)
  1. IBRUTINIB [Suspect]
     Active Substance: IBRUTINIB
     Indication: CHRONIC LYMPHOCYTIC LEUKAEMIA
     Dosage: ON DAYS 1-28, CYCLES 1-19 LAST DOSE RECEIVED PRIOR TO SAE: 29/DEC/2019, 09/OCT/2019, 12/SEP/2019
     Route: 048
     Dates: start: 20190620
  2. OBINUTUZUMAB. [Suspect]
     Active Substance: OBINUTUZUMAB
     Indication: CHRONIC LYMPHOCYTIC LEUKAEMIA
     Dosage: 100 MG IV ON DAY 1, CYCLE 1, 900 MG IV ON DAY 2, CYCLE 1, 1000 MG IV ON DAY 8, CYCLE 1, 1000 MG IV O
     Route: 042
     Dates: start: 20190620
  3. VENETOCLAX. [Suspect]
     Active Substance: VENETOCLAX
     Indication: CHRONIC LYMPHOCYTIC LEUKAEMIA
     Dosage: 20 MG PO QD DAYS 1-7 CYCLE 3, 50 MG PO QD DAYS 8-14, CYCLE 3, 100 MG PO QD DAYS 15-21, CYCLE 3, 200
     Route: 048
     Dates: start: 20190620
  4. NEULASTA [Concomitant]
     Active Substance: PEGFILGRASTIM

REACTIONS (3)
  - White blood cell count decreased [Recovering/Resolving]
  - Neutrophil count decreased [Recovering/Resolving]
  - Lymphocyte count decreased [Recovering/Resolving]

NARRATIVE: CASE EVENT DATE: 20191010
